FAERS Safety Report 4947807-X (Version None)
Quarter: 2006Q1

REPORT INFORMATION
  Report Type: 
  Country: None (occurrence: None)
  Receive Date: 20060320
  Receipt Date: 20060309
  Transmission Date: 20060701
  Serious: Yes (Other)
  Sender: FDA-Public Use
  Company Number: GB-GLAXOSMITHKLINE-B0415131A

PATIENT
  Sex: Male

DRUGS (2)
  1. COMBIVIR [Suspect]
     Indication: DRUG USE FOR UNKNOWN INDICATION
     Route: 065
  2. KALETRA [Concomitant]
     Route: 065

REACTIONS (2)
  - HEPATIC ENZYME INCREASED [None]
  - PANCREATIC INSUFFICIENCY [None]
